FAERS Safety Report 5233417-6 (Version None)
Quarter: 2007Q1

REPORT INFORMATION
  Report Type: 
  Country: None (occurrence: None)
  Receive Date: 20070206
  Receipt Date: 20070122
  Transmission Date: 20070707
  Serious: Yes (Hospitalization)
  Sender: FDA-Public Use
  Company Number: 235870

PATIENT
  Age: 65 Year
  Sex: Male
  Weight: 94 kg

DRUGS (3)
  1. AVASTIN [Suspect]
     Indication: METASTASES TO LIVER
     Dosage: 470 MG, UNK, INTRAVENOUS
     Route: 042
     Dates: start: 20061113, end: 20061127
  2. FLUOROURACIL [Suspect]
     Indication: METASTASES TO LIVER
     Dosage: 3.2 G, UNK, INTRAVENOUS
     Route: 042
     Dates: start: 20061113, end: 20061128
  3. ELOXATIN [Suspect]
     Indication: METASTASES TO LIVER
     Dosage: 170 MG, UNK, INTRAVENOUS
     Route: 042
     Dates: start: 20061113, end: 20061127

REACTIONS (2)
  - ABDOMINAL PAIN LOWER [None]
  - PERITONITIS [None]
